FAERS Safety Report 5432275-4 (Version None)
Quarter: 2007Q3

REPORT INFORMATION
  Report Type: 
  Country: None (occurrence: None)
  Receive Date: 20070830
  Receipt Date: 20070821
  Transmission Date: 20080115
  Serious: Yes (Other)
  Sender: FDA-Public Use
  Company Number: GB-PFIZER INC-2007070814

PATIENT
  Age: 40 Year
  Sex: Female
  Weight: 81.4 kg

DRUGS (7)
  1. VARENICLINE TABLETS [Suspect]
     Indication: SMOKING CESSATION THERAPY
     Route: 048
     Dates: start: 20070627, end: 20070711
  2. AMLODIPINE [Concomitant]
     Dosage: DAILY DOSE:10MG
     Route: 048
  3. ATORVASTATIN CALCIUM [Concomitant]
     Dosage: DAILY DOSE:10MG
     Route: 048
  4. DIOVAN HCT [Concomitant]
     Dosage: DAILY DOSE:160MG
     Route: 048
  5. ESCITALOPRAM OXALATE [Concomitant]
     Dosage: DAILY DOSE:20MG
     Route: 048
  6. FOLIC ACID [Concomitant]
     Indication: BLOOD FOLATE DECREASED
     Dosage: DAILY DOSE:5MG
     Route: 048
  7. LOFEPRAMINE [Concomitant]
     Indication: DEPRESSION
     Route: 048

REACTIONS (3)
  - ABNORMAL DREAMS [None]
  - DYSPEPSIA [None]
  - ORAL MUCOSAL BLISTERING [None]
